FAERS Safety Report 5332311-X (Version None)
Quarter: 2007Q2

REPORT INFORMATION
  Report Type: 
  Country: None (occurrence: None)
  Receive Date: 20070306
  Receipt Date: 20061002
  Transmission Date: 20071010
  Serious: Yes (Death)
  Sender: FDA-Public Use
  Company Number: A03200606061

PATIENT
  Age: 72 Year
  Sex: Female
  Weight: 63.5 kg

DRUGS (18)
  1. PLAVIX [Suspect]
     Indication: MYOCARDIAL INFARCTION
     Dosage: 600 MG ONCE - ORAL
     Route: 048
     Dates: start: 20040818, end: 20040818
  2. LOVENOX - HEPARIN-FRACTION, SODIUM SALT -SOLUTION - UNIT DOSE : UNKNOW [Suspect]
     Indication: MYOCARDIAL INFARCTION
     Dosage: SUBCUTANEOUS
     Route: 058
     Dates: start: 20040818
  3. INTEGRILIN [Suspect]
     Indication: STENT PLACEMENT
     Dosage: TWO DOSES OF 5.6CC BOLUS FOLLOWED BY 3.8CC/HR - INTRAVENOUS NOS
     Route: 042
     Dates: start: 20040818, end: 20040818
  4. TENECTEPLASE - SOLUTION - 50 MG [Suspect]
     Indication: MYOCARDIAL INFARCTION
     Dosage: INTRAVENOUS NOS
     Route: 042
     Dates: start: 20040818, end: 20040818
  5. ACETYLSALICYLIC ACID SRT [Suspect]
     Indication: MYOCARDIAL INFARCTION
     Dosage: ORAL
     Route: 048
     Dates: start: 20040818, end: 20040818
  6. SODIUM CHLORIDE [Concomitant]
  7. MIDAZOLAM HYDROCHLORIDE [Concomitant]
  8. FENTANYL [Concomitant]
  9. METOPROLOL TARTRATE [Concomitant]
  10. ATORVASTATIN [Concomitant]
  11. CAPTOPRIL [Concomitant]
  12. PAROXETINE HYDROCHLORIDE [Concomitant]
  13. PANTOPRAZOLE SODIUM [Concomitant]
  14. GLYCERYL TRINITRATE [Concomitant]
  15. PARACETAMOL [Concomitant]
  16. ZOLPIDEM TARTRATE [Concomitant]
  17. DOCUSATE SODIUM [Concomitant]
  18. PROPOXYPHENE NAPSYLATE AND ACETAMINOPHEN [Concomitant]

REACTIONS (3)
  - HAEMORRHAGE INTRACRANIAL [None]
  - PNEUMONIA [None]
  - PULMONARY OEDEMA [None]
